FAERS Safety Report 5688148-5 (Version None)
Quarter: 2008Q1

REPORT INFORMATION
  Report Type: 
  Country: None (occurrence: None)
  Receive Date: 20080327
  Receipt Date: 20071120
  Transmission Date: 20080703
  Serious: Yes (Death, Hospitalization)
  Sender: FDA-Public Use
  Company Number: 2008EU000396

PATIENT
  Age: 68 Year
  Sex: Male

DRUGS (11)
  1. TACROLIMUS [Suspect]
     Indication: RENAL TRANSPLANT
     Dosage: 2.5 MG, UID/QD, ORAL,3 MG, UID/QD, ORAL, 3.5 MG, UID/QD, ORAL
     Route: 048
     Dates: start: 20001111, end: 20020515
  2. TACROLIMUS [Suspect]
     Indication: RENAL TRANSPLANT
     Dosage: 2.5 MG, UID/QD, ORAL,3 MG, UID/QD, ORAL, 3.5 MG, UID/QD, ORAL
     Route: 048
     Dates: start: 20020516, end: 20020612
  3. TACROLIMUS [Suspect]
     Indication: RENAL TRANSPLANT
     Dosage: 2.5 MG, UID/QD, ORAL,3 MG, UID/QD, ORAL, 3.5 MG, UID/QD, ORAL
     Route: 048
     Dates: start: 20020613, end: 20030120
  4. DELTACORTRIL [Suspect]
     Indication: RENAL TRANSPLANT
     Dosage: 5 MG, UID/QD
     Dates: start: 19950728
  5. ALLOPURINOL [Concomitant]
  6. FOLIC ACID [Concomitant]
  7. FUROSEMIDE [Concomitant]
  8. NEXIUM [Concomitant]
  9. DISTALGESIC (DEXTROPROPOXYPHENE) [Concomitant]
  10. ASPIRIN [Concomitant]
  11. CELLCEPT [Concomitant]

REACTIONS (6)
  - COMPLICATIONS OF TRANSPLANTED KIDNEY [None]
  - DIALYSIS [None]
  - HAEMODIALYSIS [None]
  - REFUSAL OF TREATMENT BY PATIENT [None]
  - RENAL FAILURE [None]
  - TRANSPLANT REJECTION [None]
